FAERS Safety Report 15072462 (Version 1)
Quarter: 2018Q2

REPORT INFORMATION
  Report Type: Spontaneous
  Country: US (occurrence: US)
  Receive Date: 20180626
  Receipt Date: 20180626
  Transmission Date: 20180711
  Serious: No
  Sender: FDA-Public Use
  Company Number: US-ASTRAZENECA-2018SE71852

PATIENT
  Sex: Female

DRUGS (2)
  1. PULMICORT FLEXHALER [Suspect]
     Active Substance: BUDESONIDE
     Indication: BRONCHOSPASM
     Dosage: 90.0UG UNKNOWN
     Route: 055
  2. PULMICORT FLEXHALER [Suspect]
     Active Substance: BUDESONIDE
     Indication: ASTHMA
     Dosage: 90.0UG UNKNOWN
     Route: 055

REACTIONS (1)
  - Oropharyngeal pain [Unknown]
